FAERS Safety Report 7117989-2 (Version None)
Quarter: 2010Q4

REPORT INFORMATION
  Report Type: 
  Country: None (occurrence: None)
  Receive Date: 20101123
  Receipt Date: 20101119
  Transmission Date: 20110411
  Serious: Yes (Hospitalization)
  Sender: FDA-Public Use
  Company Number: PHHY2010BR26259

PATIENT
  Sex: Male

DRUGS (1)
  1. STALEVO 100 [Suspect]
     Dosage: 50/12.5/200 MG, THREE TIMES A DAY
     Route: 048
     Dates: start: 20100219, end: 20100406

REACTIONS (4)
  - ANAEMIA [None]
  - GASTROINTESTINAL ANGIODYSPLASIA [None]
  - GASTROINTESTINAL HAEMORRHAGE [None]
  - MELAENA [None]
